FAERS Safety Report 9527714 (Version 1)
Quarter: 2013Q1

REPORT INFORMATION
  Report Type: Spontaneous
  Country: US (occurrence: None)
  Receive Date: 20130314
  Receipt Date: 20130314
  Transmission Date: 20140127
  Serious: Yes (Other)
  Sender: FDA-Public Use
  Company Number: 1211USA007339

PATIENT
  Age: 58 Year
  Sex: Male

DRUGS (5)
  1. VICTRELIS [Suspect]
     Indication: HEPATITIS C
     Route: 048
     Dates: start: 201204
  2. RIBASPHERE (RIBAVIRIN) [Suspect]
  3. PEGASYS [Suspect]
  4. NEUPOGEN (FILGRASTIM) [Concomitant]
  5. PROCRIT (EOPETIN ALFA) [Concomitant]

REACTIONS (2)
  - Full blood count decreased [None]
  - Fatigue [None]
